FAERS Safety Report 10116845 (Version 2)
Quarter: 2014Q2

REPORT INFORMATION
  Report Type: Spontaneous
  Country: US (occurrence: US)
  Receive Date: 20140425
  Receipt Date: 20140425
  Transmission Date: 20141212
  Serious: No
  Sender: FDA-Public Use
  Company Number: US-GILEAD-2012-0059485

PATIENT
  Sex: Male

DRUGS (2)
  1. ATRIPLA [Suspect]
     Indication: HIV INFECTION
     Dosage: 1 DF, QD
     Dates: start: 2012
  2. ATRIPLA [Suspect]
     Dosage: 1 DF, QD
     Dates: start: 200809

REACTIONS (3)
  - Visual brightness [Recovered/Resolved]
  - Hyperacusis [Recovered/Resolved]
  - Product colour issue [Recovered/Resolved]
